FAERS Safety Report 6934367-7 (Version None)
Quarter: 2010Q3

REPORT INFORMATION
  Report Type: 
  Country: None (occurrence: None)
  Receive Date: 20100820
  Receipt Date: 20100813
  Transmission Date: 20110219
  Serious: Yes (Hospitalization)
  Sender: FDA-Public Use
  Company Number: A0876641A

PATIENT
  Age: 31 Year
  Sex: Female

DRUGS (1)
  1. AVANDAMET [Suspect]
     Route: 048
     Dates: start: 20070101, end: 20080101

REACTIONS (2)
  - CARDIAC FAILURE CONGESTIVE [None]
  - HEART RATE DECREASED [None]
